FAERS Safety Report 20342869 (Version 1)
Quarter: 2022Q1

REPORT INFORMATION
  Report Type: Report from Study
  Country: ZA (occurrence: ZA)
  Receive Date: 20220117
  Receipt Date: 20220117
  Transmission Date: 20220423
  Serious: Yes (Hospitalization)
  Sender: FDA-Public Use
  Company Number: ZA-SA-SAC20211210000537

PATIENT
  Age: 73 Year
  Sex: Male

DRUGS (10)
  1. INSULIN GLARGINE [Suspect]
     Active Substance: INSULIN GLARGINE
     Indication: Type 2 diabetes mellitus
     Dosage: 10 IU, HS
     Route: 058
     Dates: start: 20211020
  2. NIFEDIPINE [Concomitant]
     Active Substance: NIFEDIPINE
     Dosage: 30 MG, QD BEFORE BREAKFAST
     Dates: start: 20211117
  3. CIPLA-PERINDOPRIL [Concomitant]
     Dosage: 4 MG, QD BEFORE BREAKFAST
     Dates: start: 20211117
  4. SIMVASTATIN [Concomitant]
     Active Substance: SIMVASTATIN
     Dosage: 10 MG, QD AFTER SUPPER
     Dates: start: 20211117
  5. VESICARE [Concomitant]
     Active Substance: SOLIFENACIN SUCCINATE
     Dosage: 10 MG, QD BEFORE SUPPER
     Dates: start: 20211117
  6. METFORMIN [Concomitant]
     Active Substance: METFORMIN HYDROCHLORIDE
     Dosage: 1000 MG, Q12H (AFTER BREAKFAST, AFTER SUPPER)
     Dates: start: 20211117
  7. VILDAGLIPTIN [Concomitant]
     Active Substance: VILDAGLIPTIN
     Dosage: 50 MG, Q12H BEFORE BREAKFAST AND BEFORE SUPPER
     Dates: start: 20211117
  8. NOVORAPID [Concomitant]
     Active Substance: INSULIN ASPART
     Dosage: 10 IU, AC 9BEFORE BREAKFAST, BEFORE LUNCH, BEFORE SUPPER)
     Dates: start: 20211020
  9. LAMOTRIGINE [Concomitant]
     Active Substance: LAMOTRIGINE
     Dosage: 200 MG, QD BEFORE BREAKFAST
     Dates: start: 20211117
  10. GLICLAZIDE [Concomitant]
     Active Substance: GLICLAZIDE
     Dosage: 60 MG, Q12H BEFORE BREAKFAST, BEFORE SUPPER
     Dates: start: 20211117

REACTIONS (3)
  - Lung disorder [Unknown]
  - Dyspnoea [Unknown]
  - Product dose omission issue [Unknown]

NARRATIVE: CASE EVENT DATE: 20210101
